FAERS Safety Report 8593864-1 (Version None)
Quarter: 2012Q3

REPORT INFORMATION
  Report Type: 
  Country: None (occurrence: None)
  Receive Date: 20120814
  Receipt Date: 20120803
  Transmission Date: 20120928
  Serious: Yes (Hospitalization)
  Sender: FDA-Public Use
  Company Number: US-ELI_LILLY_AND_COMPANY-US201208001427

PATIENT
  Sex: Female

DRUGS (15)
  1. RISPERIDONE [Concomitant]
  2. SINGULAIR [Concomitant]
     Dosage: UNK
  3. DOXYCYCLINE HYCLATE [Concomitant]
     Dosage: 100 MG, UNK
  4. LAMICTAL [Concomitant]
  5. CLONAZEPAM [Concomitant]
  6. OMEPRAZOLE [Concomitant]
  7. SIMVASTATIN [Concomitant]
  8. NAPROXEN [Concomitant]
     Indication: PAIN
     Dosage: 500 MG, BID
  9. KEPPRA [Concomitant]
  10. FLUTICASONE PROPIONATE [Concomitant]
  11. ASTELIN [Concomitant]
  12. MELOXICAM [Concomitant]
  13. FENTANYL [Concomitant]
  14. FORTEO [Suspect]
     Dosage: 20 UG, QD
     Dates: start: 20110401
  15. RESTASIS [Concomitant]

REACTIONS (1)
  - STAPHYLOCOCCAL INFECTION [None]
